FAERS Safety Report 20675036 (Version 2)
Quarter: 2022Q2

REPORT INFORMATION
  Report Type: Report from Study
  Country: DE (occurrence: DE)
  Receive Date: 20220405
  Receipt Date: 20220510
  Transmission Date: 20220721
  Serious: No
  Sender: FDA-Public Use
  Company Number: DE-BAUSCH-BL-2022-008423

PATIENT
  Sex: Female

DRUGS (1)
  1. BRODALUMAB [Suspect]
     Active Substance: BRODALUMAB
     Indication: Psoriasis
     Route: 065
     Dates: start: 20210622

REACTIONS (2)
  - Paternal exposure during pregnancy [Unknown]
  - Underdose [Unknown]
